FAERS Safety Report 24466892 (Version 1)
Quarter: 2024Q4

REPORT INFORMATION
  Report Type: Report from Study
  Country: US (occurrence: US)
  Receive Date: 20241018
  Receipt Date: 20241018
  Transmission Date: 20250115
  Serious: No
  Sender: ROCHE
  Company Number: US-ROCHE-3548342

PATIENT
  Age: 24 Year
  Sex: Female
  Weight: 98.43 kg

DRUGS (9)
  1. XOLAIR [Suspect]
     Active Substance: OMALIZUMAB
     Indication: Idiopathic urticaria
     Dosage: ON 16/NOV/2023, SHE RECEIVED LAST INJECTION OF OMALIZUMAB.
     Route: 058
  2. XOLAIR [Suspect]
     Active Substance: OMALIZUMAB
  3. AMOXICILLIN [Concomitant]
     Active Substance: AMOXICILLIN
  4. AMPHETAMINE [Concomitant]
     Active Substance: AMPHETAMINE
  5. DESONIDE [Concomitant]
     Active Substance: DESONIDE
  6. MIRENA [Concomitant]
     Active Substance: LEVONORGESTREL
  7. SPIRONOLACTONE [Concomitant]
     Active Substance: SPIRONOLACTONE
  8. ALLEGRA [Concomitant]
     Active Substance: FEXOFENADINE HYDROCHLORIDE
  9. FLONASE [Concomitant]
     Active Substance: FLUTICASONE PROPIONATE

REACTIONS (8)
  - Urticaria [Unknown]
  - Pruritus [Unknown]
  - Rash [Unknown]
  - Rhinorrhoea [Unknown]
  - Sneezing [Unknown]
  - Rhinitis [Unknown]
  - Swelling [Unknown]
  - Mechanical urticaria [Unknown]
